FAERS Safety Report 6426374-8 (Version None)
Quarter: 2009Q4

REPORT INFORMATION
  Report Type: 
  Country: None (occurrence: None)
  Receive Date: 20091030
  Receipt Date: 20091014
  Transmission Date: 20100525
  Serious: Yes (Disabling, Other)
  Sender: FDA-Public Use
  Company Number: 2007S1000181

PATIENT
  Age: 45 Year
  Sex: Male
  Weight: 70 kg

DRUGS (6)
  1. CUBICIN [Suspect]
     Indication: OFF LABEL USE
     Dosage: 4.6 MG/KG; Q24H; IV
     Route: 042
     Dates: start: 20070202, end: 20070210
  2. CUBICIN [Suspect]
     Indication: STAPHYLOCOCCAL SEPSIS
     Dosage: 4.6 MG/KG; Q24H; IV
     Route: 042
     Dates: start: 20070202, end: 20070210
  3. CLINDAMYCIN [Concomitant]
  4. FLUCLOXACILLIN [Concomitant]
  5. FUSIDIC ACID [Concomitant]
  6. CEFTRIAXONE [Concomitant]

REACTIONS (4)
  - DEAFNESS NEUROSENSORY [None]
  - DEAFNESS UNILATERAL [None]
  - HYPOTENSION [None]
  - RASH ERYTHEMATOUS [None]
